FAERS Safety Report 4880883-1 (Version None)
Quarter: 2005Q4

REPORT INFORMATION
  Report Type: 
  Country: None (occurrence: None)
  Receive Date: 20051223
  Receipt Date: 20051102
  Transmission Date: 20060501
  Serious: No
  Sender: FDA-Public Use
  Company Number: 05P-163-0316249-00

PATIENT
  Age: 67 Year
  Sex: Female
  Weight: 54.4316 kg

DRUGS (4)
  1. HUMIRA [Suspect]
     Indication: RHEUMATOID ARTHRITIS
     Dosage: 40 MG, 1 IN 1 WK, SUBCUTANEOUS
     Route: 058
     Dates: start: 20040101
  2. METOPROLOL SUCCINATE [Concomitant]
  3. ATORVASTATIN CALCIUM [Concomitant]
  4. UNKNOWN BLOOD RPESSURE MEDICATION [Concomitant]

REACTIONS (2)
  - NERVOUSNESS [None]
  - RHEUMATOID ARTHRITIS [None]
